FAERS Safety Report 18766939 (Version 1)
Quarter: 2021Q1

REPORT INFORMATION
  Report Type: Spontaneous
  Country: US (occurrence: US)
  Receive Date: 20210120
  Receipt Date: 20210120
  Transmission Date: 20210419
  Serious: Yes (Hospitalization, Other)
  Sender: FDA-Public Use
  Company Number: None

PATIENT
  Age: 32 Year
  Sex: Female
  Weight: 56.25 kg

DRUGS (7)
  1. ZINC. [Concomitant]
     Active Substance: ZINC
  2. VITAMIN D [Concomitant]
     Active Substance: VITAMIN D NOS
  3. DHA [Concomitant]
     Active Substance: DIETARY SUPPLEMENT
  4. PROZAC [Suspect]
     Active Substance: FLUOXETINE HYDROCHLORIDE
     Indication: AFFECTIVE DISORDER
     Route: 048
     Dates: start: 20210116
  5. FISH OIL [Concomitant]
     Active Substance: FISH OIL
  6. MULTIVITAMIN GUMMIES [Concomitant]
  7. METHYLFOLATE [Concomitant]
     Active Substance: LEVOMEFOLATE CALCIUM

REACTIONS (2)
  - Heart rate increased [None]
  - Dyspnoea [None]

NARRATIVE: CASE EVENT DATE: 20210116
